FAERS Safety Report 19884620 (Version 1)
Quarter: 2021Q3

REPORT INFORMATION
  Report Type: Spontaneous
  Country: US (occurrence: US)
  Receive Date: 20210927
  Receipt Date: 20210927
  Transmission Date: 20211014
  Serious: No
  Sender: FDA-Public Use
  Company Number: US-JNJFOC-20210921113

PATIENT
  Sex: Female

DRUGS (1)
  1. TYLENOL [Suspect]
     Active Substance: ACETAMINOPHEN
     Indication: PRODUCT USED FOR UNKNOWN INDICATION
     Dosage: TWO ARTHRITIS ONES IN THE MORNING
     Route: 065

REACTIONS (3)
  - Inappropriate schedule of product administration [Unknown]
  - Pruritus [Unknown]
  - Arthralgia [Unknown]
